FAERS Safety Report 11637228 (Version 1)
Quarter: 2015Q4

REPORT INFORMATION
  Report Type: Spontaneous
  Country: US (occurrence: US)
  Receive Date: 20151016
  Receipt Date: 20151016
  Transmission Date: 20160304
  Serious: Yes (Death, Life-Threatening, Congenital Anomaly, Other)
  Sender: FDA-Public Use
  Company Number: US-PFIZER INC-2015343065

PATIENT
  Sex: Male

DRUGS (2)
  1. VIAGRA [Suspect]
     Active Substance: SILDENAFIL CITRATE
     Indication: ERECTILE DYSFUNCTION
     Dosage: UNK
     Route: 050
  2. CHANTIX [Suspect]
     Active Substance: VARENICLINE TARTRATE
     Indication: ERECTILE DYSFUNCTION
     Dosage: UNK
     Route: 050

REACTIONS (3)
  - Death [Fatal]
  - Exposure via father [Fatal]
  - Congenital anomaly [Unknown]
